FAERS Safety Report 5051381-X (Version None)
Quarter: 2006Q3

REPORT INFORMATION
  Report Type: 
  Country: None (occurrence: None)
  Receive Date: 20060714
  Receipt Date: 20050623
  Transmission Date: 20061208
  Serious: Yes (Hospitalization, Disabling)
  Sender: FDA-Public Use
  Company Number: US-ROCHE-408899

PATIENT
  Age: 18 Year
  Sex: Male
  Weight: 77.1 kg

DRUGS (4)
  1. ACCUTANE [Suspect]
     Indication: ACNE
     Route: 048
     Dates: start: 19990803, end: 19990907
  2. ACCUTANE [Suspect]
     Dosage: 40MG AND 40MG BID ADMINISTERED ALTERNATE DAYS
     Route: 048
     Dates: start: 19990907, end: 19991005
  3. ACCUTANE [Suspect]
     Route: 048
     Dates: start: 19991005, end: 19991102
  4. ACCUTANE [Suspect]
     Route: 048
     Dates: start: 19991102, end: 20000215

REACTIONS (43)
  - ABDOMINAL DISTENSION [None]
  - ALOPECIA [None]
  - ANAEMIA [None]
  - ANXIETY [None]
  - BACK PAIN [None]
  - BRUXISM [None]
  - COAGULOPATHY [None]
  - COLITIS [None]
  - COLITIS ULCERATIVE [None]
  - CONSTIPATION [None]
  - CROHN'S DISEASE [None]
  - DRY SKIN [None]
  - DYSPEPSIA [None]
  - EAR INFECTION [None]
  - ERUCTATION [None]
  - GASTRIC DISORDER [None]
  - GASTRITIS [None]
  - GASTROINTESTINAL DISORDER [None]
  - GASTROINTESTINAL MOTILITY DISORDER [None]
  - GASTROOESOPHAGEAL REFLUX DISEASE [None]
  - HAEMATOCHEZIA [None]
  - HAEMORRHAGE [None]
  - HAEMORRHOIDS [None]
  - HEADACHE [None]
  - ILEITIS [None]
  - ILL-DEFINED DISORDER [None]
  - INFLAMMATORY BOWEL DISEASE [None]
  - INTESTINAL HAEMORRHAGE [None]
  - INTESTINAL OBSTRUCTION [None]
  - IRON DEFICIENCY ANAEMIA [None]
  - IRRITABLE BOWEL SYNDROME [None]
  - LIP DRY [None]
  - MULTI-ORGAN DISORDER [None]
  - NAUSEA [None]
  - NECK PAIN [None]
  - OESOPHAGEAL DISORDER [None]
  - PAIN [None]
  - PYREXIA [None]
  - RASH [None]
  - RECTAL HAEMORRHAGE [None]
  - SINUSITIS [None]
  - VISION BLURRED [None]
  - WEIGHT DECREASED [None]
